FAERS Safety Report 7376417-2 (Version None)
Quarter: 2011Q1

REPORT INFORMATION
  Report Type: 
  Country: None (occurrence: None)
  Receive Date: 20110317
  Receipt Date: 20110307
  Transmission Date: 20110831
  Serious: Yes (Hospitalization)
  Sender: FDA-Public Use
  Company Number: CH-004766

PATIENT
  Sex: Male

DRUGS (10)
  1. FIRMAGON [Suspect]
     Indication: PROSTATE CANCER
     Dosage: (240 MG 1X SUBCUTANEOUS)
     Route: 058
     Dates: start: 20110216, end: 20110216
  2. VENTOLIN [Concomitant]
  3. MAGNESIOCARD [Concomitant]
  4. ATROVENT [Concomitant]
  5. LEXOTANIL [Concomitant]
  6. SERETIDE [Concomitant]
  7. CLEXANE [Concomitant]
  8. ZOLPIDEM [Concomitant]
  9. DAFALGAN [Concomitant]
  10. NATRII CHLORIDUM [Concomitant]

REACTIONS (5)
  - INJECTION SITE RASH [None]
  - INJECTION SITE REACTION [None]
  - INJECTION SITE INDURATION [None]
  - INJECTION SITE PAIN [None]
  - INJECTION SITE ERYTHEMA [None]
